FAERS Safety Report 20905426 (Version 1)
Quarter: 2022Q2

REPORT INFORMATION
  Report Type: Other
  Country: US (occurrence: None)
  Receive Date: 20220602
  Receipt Date: 20220602
  Transmission Date: 20220721
  Serious: Yes (Other)
  Sender: FDA-Public Use
  Company Number: US-ROCHE-3103952

PATIENT
  Sex: Female

DRUGS (16)
  1. OCREVUS [Suspect]
     Active Substance: OCRELIZUMAB
     Indication: Relapsing-remitting multiple sclerosis
     Dosage: DATE OF TREATMENT : /JAN/2021
     Route: 042
     Dates: start: 20201221
  2. KLONOPIN [Suspect]
     Active Substance: CLONAZEPAM
     Indication: Anxiety
     Route: 048
     Dates: start: 20210505, end: 20210719
  3. TYSABRI [Concomitant]
     Active Substance: NATALIZUMAB
  4. FENTANYL [Concomitant]
     Active Substance: FENTANYL
  5. ADDERALL [Concomitant]
     Active Substance: AMPHETAMINE ASPARTATE\AMPHETAMINE SULFATE\DEXTROAMPHETAMINE SACCHARATE\DEXTROAMPHETAMINE SULFATE
  6. ABILIFY [Concomitant]
     Active Substance: ARIPIPRAZOLE
  7. SOMA [Concomitant]
     Active Substance: CARISOPRODOL
  8. VITAMIN B12 [Concomitant]
     Active Substance: CYANOCOBALAMIN
  9. DEPAKOTE [Concomitant]
     Active Substance: DIVALPROEX SODIUM
  10. DRISDOL [Concomitant]
     Active Substance: ERGOCALCIFEROL
  11. MOTRIN [Concomitant]
     Active Substance: IBUPROFEN
  12. BACTROBAN [Concomitant]
     Active Substance: MUPIROCIN\MUPIROCIN CALCIUM
  13. LYRICA [Concomitant]
     Active Substance: PREGABALIN
  14. REQUIP [Concomitant]
     Active Substance: ROPINIROLE HYDROCHLORIDE
  15. IMITREX [Concomitant]
     Active Substance: SUMATRIPTAN SUCCINATE
  16. SONATA (UNITED STATES) [Concomitant]

REACTIONS (11)
  - Rectal prolapse [Unknown]
  - Memory impairment [Not Recovered/Not Resolved]
  - Off label use [Unknown]
  - Headache [Unknown]
  - Myofascial pain syndrome [Unknown]
  - Back pain [Unknown]
  - Pain in extremity [Unknown]
  - Gait disturbance [Unknown]
  - Coordination abnormal [Unknown]
  - Radiculopathy [Unknown]
  - Muscle spasms [Unknown]
